FAERS Safety Report 8130863-8 (Version None)
Quarter: 2012Q1

REPORT INFORMATION
  Report Type: 
  Country: None (occurrence: None)
  Receive Date: 20120213
  Receipt Date: 20120207
  Transmission Date: 20120608
  Serious: No
  Sender: FDA-Public Use
  Company Number: US-PFIZER INC-2012034453

PATIENT
  Sex: Female
  Weight: 54.4 kg

DRUGS (6)
  1. MORPHINE SULFATE [Suspect]
     Indication: ARTHRITIS
  2. CELEBREX [Suspect]
     Indication: ARTHRITIS
  3. ULTRAM [Suspect]
     Indication: PAIN
     Dosage: UNKNOWN DOSE TWO OR THREE TIMES A WEEK
     Route: 048
  4. MORPHINE SULFATE [Suspect]
     Indication: SPONDYLITIS
     Dosage: 30MG THREE TIMES A DAY
  5. LISINOPRIL [Concomitant]
     Indication: HYPERTENSION
     Dosage: 40 MG, 2X/DAY
  6. CELEBREX [Suspect]
     Indication: SPONDYLITIS
     Dosage: 200 MG, 3X/DAY
     Route: 048

REACTIONS (4)
  - CARDIAC DISORDER [None]
  - RENAL DISORDER [None]
  - DRUG INEFFECTIVE [None]
  - PAIN [None]
